FAERS Safety Report 5869965-5 (Version None)
Quarter: 2008Q3

REPORT INFORMATION
  Report Type: 
  Country: None (occurrence: None)
  Receive Date: 20080904
  Receipt Date: 20080904
  Transmission Date: 20090109
  Serious: Yes (Hospitalization, Other)
  Sender: FDA-Public Use
  Company Number: PHEH1995US03156

PATIENT
  Sex: Male
  Weight: 79.9 kg

DRUGS (6)
  1. SANDIMMUNE [Suspect]
     Route: 048
     Dates: start: 19940905
  2. PREDNISONE TAB [Concomitant]
     Dosage: UNSPECIFIED
     Route: 065
  3. IMURAN [Concomitant]
  4. ADALAT [Concomitant]
  5. PEPCID [Concomitant]
  6. SEPTRA [Concomitant]

REACTIONS (1)
  - LYMPHOMA [None]
